FAERS Safety Report 14328144 (Version 4)
Quarter: 2019Q1

REPORT INFORMATION
  Report Type: Report from Study
  Country: DE (occurrence: DE)
  Receive Date: 20171227
  Receipt Date: 20190308
  Transmission Date: 20190417
  Serious: Yes (Hospitalization)
  Sender: FDA-Public Use
  Company Number: DE-JNJFOC-20151201014

PATIENT
  Age: 27 Year
  Sex: Female
  Weight: 80 kg

DRUGS (6)
  1. IBUPROFEN. [Suspect]
     Active Substance: IBUPROFEN
     Indication: ARTHRALGIA
     Route: 065
  2. REMICADE [Suspect]
     Active Substance: INFLIXIMAB
     Indication: CROHN^S DISEASE
     Route: 042
     Dates: start: 20151019, end: 20161004
  3. AZATHIOPRIN [Concomitant]
     Active Substance: AZATHIOPRINE
     Route: 065
  4. MESALAZINE [Concomitant]
     Active Substance: MESALAMINE
     Route: 065
     Dates: start: 20151018
  5. REMICADE [Suspect]
     Active Substance: INFLIXIMAB
     Indication: CROHN^S DISEASE
     Route: 042
     Dates: end: 20161215
  6. IBUPROFEN. [Suspect]
     Active Substance: IBUPROFEN
     Route: 065

REACTIONS (3)
  - Hospitalisation [Recovered/Resolved]
  - Exposure during pregnancy [Recovered/Resolved]
  - Drug ineffective [Recovered/Resolved]

NARRATIVE: CASE EVENT DATE: 20151027
